FAERS Safety Report 5577305-4 (Version None)
Quarter: 2007Q4

REPORT INFORMATION
  Report Type: 
  Country: None (occurrence: None)
  Receive Date: 20071228
  Receipt Date: 20071218
  Transmission Date: 20080405
  Serious: No
  Sender: FDA-Public Use
  Company Number: JP-PFIZER INC-2007095428

PATIENT
  Sex: Female

DRUGS (13)
  1. CELECOX [Suspect]
     Indication: SPINAL OSTEOARTHRITIS
     Route: 048
     Dates: start: 20070801, end: 20071107
  2. ALENDRONATE SODIUM [Concomitant]
     Dosage: DAILY DOSE:5MG
     Route: 048
  3. DICLOFENAC SODIUM [Concomitant]
  4. FOSAMAX [Concomitant]
     Dosage: DAILY DOSE:5MG
     Route: 048
  5. ELCATONIN [Concomitant]
     Dosage: DAILY DOSE:20I.U.
     Route: 030
  6. MAGNESIUM OXIDE [Concomitant]
     Dosage: DAILY DOSE:990MG
     Route: 048
  7. ADOFEED [Concomitant]
  8. INDOMETHACIN [Concomitant]
  9. CIMETIDINE [Concomitant]
     Route: 048
  10. BUFFERIN [Concomitant]
     Route: 048
  11. DILTIAZEM HYDROCHLORIDE [Concomitant]
     Route: 048
  12. SUCRALFATE [Concomitant]
     Route: 048
  13. WARFARIN SODIUM [Concomitant]
     Route: 048

REACTIONS (3)
  - ABDOMINAL PAIN UPPER [None]
  - DRY EYE [None]
  - DRY MOUTH [None]
